FAERS Safety Report 11348769 (Version 2)
Quarter: 2015Q3

REPORT INFORMATION
  Report Type: Spontaneous
  Country: US (occurrence: US)
  Receive Date: 20150806
  Receipt Date: 20150901
  Transmission Date: 20151125
  Serious: Yes (Hospitalization, Other)
  Sender: FDA-Public Use
  Company Number: US-ALLERGAN-1515194US

PATIENT
  Sex: Female

DRUGS (2)
  1. BOTOX [Suspect]
     Active Substance: ONABOTULINUMTOXINA
     Indication: URINARY INCONTINENCE
     Dosage: 300 UNITS, SINGLE, EVERY 6 MONTHS
     Route: 043
  2. BOTOX [Suspect]
     Active Substance: ONABOTULINUMTOXINA
     Dosage: 200 UNITS, SINGLE, EVERY 6 MONTHS
     Route: 043

REACTIONS (10)
  - Off label use [Unknown]
  - Haematuria [Unknown]
  - Muscular weakness [Recovered/Resolved]
  - Somnolence [Unknown]
  - Aphasia [Recovered/Resolved]
  - Urinary tract infection [Unknown]
  - Regurgitation [Unknown]
  - Muscular weakness [Unknown]
  - Dysarthria [Unknown]
  - Nausea [Unknown]

NARRATIVE: CASE EVENT DATE: 201405
